FAERS Safety Report 8530488-6 (Version None)
Quarter: 2012Q3

REPORT INFORMATION
  Report Type: 
  Country: None (occurrence: None)
  Receive Date: 20120723
  Receipt Date: 20120718
  Transmission Date: 20120928
  Serious: No
  Sender: FDA-Public Use
  Company Number: US-TEVA-348048USA

PATIENT
  Sex: Female
  Weight: 41.314 kg

DRUGS (2)
  1. PLAN B ONE-STEP [Suspect]
     Indication: POST COITAL CONTRACEPTION
     Dosage: 1.5 MILLIGRAM;
     Route: 048
     Dates: start: 20120601, end: 20120601
  2. PENICILLIN [Suspect]
     Indication: PHARYNGITIS
     Dates: start: 20120708

REACTIONS (4)
  - URTICARIA [None]
  - MENSTRUATION IRREGULAR [None]
  - PELVIC PAIN [None]
  - PHARYNGITIS [None]
